FAERS Safety Report 6811666-0 (Version None)
Quarter: 2010Q3

REPORT INFORMATION
  Report Type: 
  Country: None (occurrence: None)
  Receive Date: 20100701
  Receipt Date: 20100623
  Transmission Date: 20110219
  Serious: No
  Sender: FDA-Public Use
  Company Number: US-BIOGENIDEC-2010BI021653

PATIENT
  Sex: Female

DRUGS (1)
  1. TYSABRI [Suspect]
     Indication: MULTIPLE SCLEROSIS
     Route: 042
     Dates: start: 20100409

REACTIONS (7)
  - ALOPECIA [None]
  - DIARRHOEA [None]
  - HEADACHE [None]
  - NAUSEA [None]
  - RHEUMATOID ARTHRITIS [None]
  - VERTIGO [None]
  - VOMITING [None]
